FAERS Safety Report 9418284 (Version 1)
Quarter: 2013Q3

REPORT INFORMATION
  Report Type: Spontaneous
  Country: KR (occurrence: KR)
  Receive Date: 20130724
  Receipt Date: 20130724
  Transmission Date: 20140515
  Serious: Yes (Hospitalization)
  Sender: FDA-Public Use
  Company Number: PHHY2013KR075084

PATIENT
  Age: 66 Year
  Sex: Male

DRUGS (2)
  1. STALEVO [Suspect]
     Indication: PARKINSON^S DISEASE
     Dosage: UNK
  2. SINEMET [Concomitant]
     Indication: PARKINSON^S DISEASE
     Dosage: UNK UKN, UNK
     Dates: start: 2006

REACTIONS (4)
  - Dysuria [Unknown]
  - Abdominal pain upper [Unknown]
  - Constipation [Unknown]
  - Drug ineffective [Unknown]
